FAERS Safety Report 7620256-1 (Version None)
Quarter: 2011Q3

REPORT INFORMATION
  Report Type: 
  Country: None (occurrence: None)
  Receive Date: 20110719
  Receipt Date: 20110708
  Transmission Date: 20111222
  Serious: No
  Sender: FDA-Public Use
  Company Number: PHHY2011US62799

PATIENT
  Sex: Male
  Weight: 92.971 kg

DRUGS (5)
  1. RAMIPRIL [Concomitant]
  2. GLIPIZIDE [Concomitant]
  3. TASIGNA [Suspect]
     Indication: NEOPLASM MALIGNANT
     Dosage: 400 MG, BID
     Route: 048
     Dates: start: 20110620
  4. PLAVIX [Concomitant]
  5. SIMVASTATIN [Concomitant]

REACTIONS (1)
  - CONSTIPATION [None]
